FAERS Safety Report 4791190-X (Version None)
Quarter: 2005Q4

REPORT INFORMATION
  Report Type: 
  Country: None (occurrence: None)
  Receive Date: 20051005
  Receipt Date: 20050901
  Transmission Date: 20060501
  Serious: No
  Sender: FDA-Public Use
  Company Number: 2005RR-00692

PATIENT
  Age: 68 Year
  Sex: Male

DRUGS (5)
  1. ASPIRIN [Suspect]
     Dosage: 75 MG, QD, ORAL
     Route: 048
  2. ISOSORBIDE DINITRATE [Concomitant]
  3. ATENOLOL [Concomitant]
  4. AMLODIPINE [Concomitant]
  5. SIMVASTATIN [Concomitant]

REACTIONS (3)
  - EYE HAEMORRHAGE [None]
  - MACULOPATHY [None]
  - PROTHROMBIN TIME PROLONGED [None]
